FAERS Safety Report 19960532 (Version 1)
Quarter: 2021Q4

REPORT INFORMATION
  Report Type: Report from Study
  Country: GB (occurrence: GB)
  Receive Date: 20211015
  Receipt Date: 20211015
  Transmission Date: 20220303
  Serious: Yes (Other)
  Sender: FDA-Public Use
  Company Number: GB-TAKEDA-2021TUS033421

PATIENT
  Age: 30 Year
  Sex: Female

DRUGS (1)
  1. VEDOLIZUMAB [Suspect]
     Active Substance: VEDOLIZUMAB
     Indication: Colitis ulcerative
     Dosage: 108 MILLIGRAM, Q2WEEKS
     Route: 058
     Dates: start: 20210524

REACTIONS (14)
  - Colitis ulcerative [Unknown]
  - Injection site mass [Unknown]
  - Injection site discolouration [Unknown]
  - Lethargy [Unknown]
  - Mobility decreased [Unknown]
  - Anxiety [Unknown]
  - Localised infection [Unknown]
  - Bedridden [Unknown]
  - Hangover [Unknown]
  - Decreased appetite [Unknown]
  - Arthralgia [Unknown]
  - Headache [Unknown]
  - Fatigue [Unknown]
  - Product dose omission issue [Unknown]
